FAERS Safety Report 10727084 (Version 2)
Quarter: 2015Q1

REPORT INFORMATION
  Report Type: Report from Study
  Country: MX (occurrence: MX)
  Receive Date: 20150121
  Receipt Date: 20150206
  Transmission Date: 20150721
  Serious: Yes (Other)
  Sender: FDA-Public Use
  Company Number: PHHY2014MX165637

PATIENT
  Age: 72 Year
  Sex: Male

DRUGS (8)
  1. ADALAT CC [Concomitant]
     Active Substance: NIFEDIPINE
     Indication: HYPERTENSION
     Dosage: 1 DF (TABLET), QHS
     Route: 065
  2. ULSEN [Concomitant]
     Active Substance: OMEPRAZOLE
     Indication: GASTRITIS PROPHYLAXIS
     Dosage: 2 DF, QD
     Route: 065
  3. DOLAC [Concomitant]
     Indication: HEADACHE
     Dosage: 0.5 DF, PRN (ONLY WHEN NECESSARY)
     Route: 065
  4. DIOVAN [Suspect]
     Active Substance: VALSARTAN
     Indication: HYPERTENSION
     Dosage: 160 MG, UNK
     Route: 065
     Dates: start: 201107, end: 2014
  5. DIOVAN [Suspect]
     Active Substance: VALSARTAN
     Dosage: 80 MG, QD
     Route: 065
     Dates: start: 2014
  6. DIOVAN [Suspect]
     Active Substance: VALSARTAN
     Dosage: 320 MG, UNK
     Route: 065
     Dates: start: 201404
  7. DIOVAN [Suspect]
     Active Substance: VALSARTAN
     Dosage: 160 MG, UNK
     Route: 065
     Dates: start: 2014, end: 2014
  8. ALIN [Concomitant]
     Indication: INFLAMMATION
     Dosage: 1 DF, BID (IN THE MORNING AND IN THE AFTERNOON)
     Route: 065

REACTIONS (5)
  - Blood pressure increased [Recovered/Resolved]
  - Ulcer [Recovered/Resolved]
  - Gait disturbance [Not Recovered/Not Resolved]
  - Metastatic neoplasm [Recovered/Resolved]
  - Blood pressure fluctuation [Not Recovered/Not Resolved]

NARRATIVE: CASE EVENT DATE: 201404
